FAERS Safety Report 25124819 (Version 2)
Quarter: 2025Q2

REPORT INFORMATION
  Report Type: Spontaneous
  Country: FR (occurrence: FR)
  Receive Date: 20250326
  Receipt Date: 20250624
  Transmission Date: 20250717
  Serious: Yes (Other)
  Sender: BRISTOL-MYERS SQUIBB COMPANY
  Company Number: FR-BRISTOL-MYERS SQUIBB COMPANY-2025-043872

PATIENT
  Sex: Female

DRUGS (2)
  1. BELATACEPT [Suspect]
     Active Substance: BELATACEPT
     Indication: Product used for unknown indication
     Dates: start: 202310
  2. BELATACEPT [Suspect]
     Active Substance: BELATACEPT
     Dates: start: 202501

REACTIONS (6)
  - Off label use [Unknown]
  - Transplant rejection [Unknown]
  - Donor specific antibody present [Unknown]
  - Blood creatinine abnormal [Recovered/Resolved]
  - Cerebral haemorrhage [Unknown]
  - Papilloedema [Unknown]

NARRATIVE: CASE EVENT DATE: 20250101
